FAERS Safety Report 6110922-1 (Version None)
Quarter: 2009Q1

REPORT INFORMATION
  Report Type: 
  Country: None (occurrence: None)
  Receive Date: 20090311
  Receipt Date: 20081201
  Transmission Date: 20090719
  Serious: No
  Sender: FDA-Public Use
  Company Number: US-KINGPHARMUSA00001-K200801364

PATIENT
  Age: 76 Year
  Sex: Female
  Weight: 58.957 kg

DRUGS (6)
  1. ALTACE [Suspect]
     Indication: CARDIAC DISORDER
     Dosage: 10 MG, UNK
  2. ALTACE [Suspect]
     Dosage: 5 MG, UNK
     Dates: start: 20060101
  3. BYETTA [Concomitant]
     Dosage: UNK
  4. LANTUS [Concomitant]
     Dosage: UNK
  5. DILTIAZEM CD [Concomitant]
     Dosage: 180 MG, QD
  6. METOPROLOL [Concomitant]
     Dosage: 100 MG, QD

REACTIONS (1)
  - GENITAL DISCHARGE [None]
